FAERS Safety Report 11145831 (Version 2)
Quarter: 2015Q3

REPORT INFORMATION
  Report Type: Spontaneous
  Country: US (occurrence: US)
  Receive Date: 20150528
  Receipt Date: 20150714
  Transmission Date: 20151125
  Serious: Yes (Other)
  Sender: FDA-Public Use
  Company Number: US-PFIZER INC-2015179728

PATIENT
  Age: 76 Year
  Sex: Male
  Weight: 104 kg

DRUGS (2)
  1. SUTENT [Suspect]
     Active Substance: SUNITINIB MALATE
     Dosage: 50 MG, DAILY 4 WKS ON 2 WKS OFF
     Route: 048
     Dates: start: 20150526
  2. SUTENT [Suspect]
     Active Substance: SUNITINIB MALATE
     Indication: RENAL CANCER
     Dosage: 50 MG, DAILY 4 WKS ON 2 WKS OFF
     Route: 048
     Dates: start: 20150326, end: 20150423

REACTIONS (3)
  - Mouth ulceration [Recovered/Resolved]
  - Tooth abscess [Recovered/Resolved]
  - Neutropenia [Recovered/Resolved]

NARRATIVE: CASE EVENT DATE: 2015
